FAERS Safety Report 6499026-6 (Version None)
Quarter: 2009Q4

REPORT INFORMATION
  Report Type: 
  Country: None (occurrence: None)
  Receive Date: 20091127
  Receipt Date: 20081017
  Transmission Date: 20100525
  Serious: Yes (Hospitalization)
  Sender: FDA-Public Use
  Company Number: 278943

PATIENT
  Age: 9 Year
  Sex: Female
  Weight: 54.4 kg

DRUGS (2)
  1. NOVOLOG [Suspect]
     Indication: TYPE 1 DIABETES MELLITUS
     Dosage: 200 IU, Q 2 DAYS, SUBCUTAN.-PUMP
     Route: 058
     Dates: start: 20050101
  2. ZOLOFT [Concomitant]

REACTIONS (2)
  - DIABETIC KETOACIDOSIS [None]
  - DRUG INEFFECTIVE [None]
